FAERS Safety Report 16458085 (Version 1)
Quarter: 2019Q2

REPORT INFORMATION
  Report Type: Spontaneous
  Country: US (occurrence: US)
  Receive Date: 20190510
  Receipt Date: 20190510
  Transmission Date: 20190711
  Serious: No
  Sender: FDA-Public Use
  Company Number: None

PATIENT
  Age: 64 Year
  Sex: Female

DRUGS (1)
  1. PRALUENT [Suspect]
     Active Substance: ALIROCUMAB
     Dates: start: 20190313

REACTIONS (6)
  - Abdominal pain [None]
  - Hepatic pain [None]
  - Faeces discoloured [None]
  - Diarrhoea [None]
  - Chest discomfort [None]
  - Pain in extremity [None]

NARRATIVE: CASE EVENT DATE: 20190313
